FAERS Safety Report 6110510-7 (Version None)
Quarter: 2009Q1

REPORT INFORMATION
  Report Type: 
  Country: None (occurrence: None)
  Receive Date: 20090310
  Receipt Date: 20090305
  Transmission Date: 20090719
  Serious: Yes (Hospitalization, Other)
  Sender: FDA-Public Use
  Company Number: CA-ROXANE LABORATORIES, INC.-2009-RO-00209RO

PATIENT
  Age: 37 Year
  Sex: Male

DRUGS (5)
  1. NAPROXEN [Suspect]
     Indication: SUICIDE ATTEMPT
     Route: 048
  2. LORAZEPAM [Suspect]
     Indication: SUICIDE ATTEMPT
     Route: 048
  3. OXAZEPAM [Suspect]
     Indication: SUICIDE ATTEMPT
     Route: 048
  4. BACLOFEN [Suspect]
     Indication: SUICIDE ATTEMPT
     Route: 048
  5. ETHANOL [Suspect]
     Indication: SUICIDE ATTEMPT
     Route: 048

REACTIONS (3)
  - HYPERBILIRUBINAEMIA [None]
  - OVERDOSE [None]
  - SUICIDE ATTEMPT [None]
